FAERS Safety Report 16371999 (Version 1)
Quarter: 2019Q2

REPORT INFORMATION
  Report Type: Other
  Country: CA (occurrence: CA)
  Receive Date: 20190530
  Receipt Date: 20190530
  Transmission Date: 20190711
  Serious: Yes (Death, Hospitalization, Other)
  Sender: FDA-Public Use
  Company Number: CA-APOTEX-2019AP014963

PATIENT
  Age: 86 Year
  Sex: Male

DRUGS (1)
  1. SALBUTAMOL [Suspect]
     Active Substance: ALBUTEROL
     Indication: PRODUCT USED FOR UNKNOWN INDICATION
     Dosage: UNK
     Route: 065

REACTIONS (8)
  - Neoplasm malignant [Fatal]
  - Abdominal pain upper [Fatal]
  - Asthma [Fatal]
  - Intra-abdominal fluid collection [Fatal]
  - Blood count abnormal [Fatal]
  - Liver disorder [Fatal]
  - Pancreatic mass [Fatal]
  - Therapeutic product effect incomplete [Fatal]
